FAERS Safety Report 4274134-9 (Version None)
Quarter: 2004Q1

REPORT INFORMATION
  Report Type: 
  Country: None (occurrence: None)
  Receive Date: 20040120
  Receipt Date: 20040115
  Transmission Date: 20041129
  Serious: Yes (Life-Threatening, Hospitalization)
  Sender: FDA-Public Use
  Company Number: US-BRISTOL-MYERS SQUIBB COMPANY-12478236

PATIENT
  Age: 41 Year
  Sex: Female
  Weight: 55 kg

DRUGS (4)
  1. CARBOPLATIN [Suspect]
     Indication: SQUAMOUS CELL CARCINOMA
     Dosage: INITIAL DOSE: 17-DEC-2003
     Route: 026
     Dates: start: 20031222, end: 20031222
  2. HYDROCHLOROTHIAZIDE [Concomitant]
  3. WELLBUTRIN [Concomitant]
  4. ALBUTEROL [Concomitant]

REACTIONS (3)
  - DEHYDRATION [None]
  - HYPERNATRAEMIA [None]
  - LOBAR PNEUMONIA [None]
